FAERS Safety Report 6261932-5 (Version None)
Quarter: 2009Q3

REPORT INFORMATION
  Report Type: 
  Country: None (occurrence: None)
  Receive Date: 20090709
  Receipt Date: 20090304
  Transmission Date: 20100115
  Serious: Yes (Death, Hospitalization)
  Sender: FDA-Public Use
  Company Number: B0582776A

PATIENT
  Age: 75 Year
  Sex: Male
  Weight: 78 kg

DRUGS (8)
  1. OMACOR [Suspect]
     Indication: PROPHYLAXIS
     Dosage: 1000MG PER DAY
     Route: 048
     Dates: start: 20070103, end: 20070101
  2. ASPIRIN [Concomitant]
  3. CLOPIDOGREL [Concomitant]
  4. MARCUMAR [Concomitant]
  5. ACE INHIBITOR [Concomitant]
  6. DIURETICS [Concomitant]
  7. DIGITALIS TAB [Concomitant]
  8. STATINS [Concomitant]

REACTIONS (4)
  - CARDIAC DISORDER [None]
  - DEATH [None]
  - LUNG DISORDER [None]
  - RENAL DISORDER [None]
